FAERS Safety Report 9685186 (Version 2)
Quarter: 2013Q4

REPORT INFORMATION
  Report Type: Spontaneous
  Country: AU (occurrence: AU)
  Receive Date: 20131113
  Receipt Date: 20131212
  Transmission Date: 20140711
  Serious: Yes (Hospitalization)
  Sender: FDA-Public Use
  Company Number: AU-BAYER-2013-135702

PATIENT
  Age: 28 Year
  Sex: Female
  Weight: 57 kg

DRUGS (2)
  1. YASMIN [Suspect]
     Indication: CONTRACEPTION
     Dosage: UNK
     Dates: start: 20130228, end: 20131101
  2. CAPOTEN [Concomitant]

REACTIONS (4)
  - Dyspnoea [None]
  - Pulmonary embolism [None]
  - Lower respiratory tract infection [Recovered/Resolved]
  - Streptococcus test positive [Recovered/Resolved]
